FAERS Safety Report 15991591 (Version 3)
Quarter: 2019Q2

REPORT INFORMATION
  Report Type: Spontaneous
  Country: US (occurrence: US)
  Receive Date: 20190221
  Receipt Date: 20190426
  Transmission Date: 20190711
  Serious: Yes (Other)
  Sender: FDA-Public Use
  Company Number: US-ASTRAZENECA-2018SF64839

PATIENT
  Age: 17120 Day
  Sex: Male

DRUGS (18)
  1. NEXIUM [Suspect]
     Active Substance: ESOMEPRAZOLE MAGNESIUM
     Route: 048
  2. VENOFER [Concomitant]
     Active Substance: IRON SUCROSE
  3. NEXIUM [Suspect]
     Active Substance: ESOMEPRAZOLE MAGNESIUM
     Route: 048
     Dates: start: 20150916
  4. PRILOSEC [Suspect]
     Active Substance: OMEPRAZOLE MAGNESIUM
     Route: 048
     Dates: start: 20120101, end: 20161231
  5. PRILOSEC OTC [Suspect]
     Active Substance: OMEPRAZOLE MAGNESIUM
     Route: 048
  6. GENTAMICIN. [Concomitant]
     Active Substance: GENTAMICIN
  7. NEXIUM 24HR [Suspect]
     Active Substance: ESOMEPRAZOLE MAGNESIUM
     Route: 048
  8. HEPARIN [Concomitant]
     Active Substance: HEPARIN SODIUM
  9. DOXAZOSIN [Concomitant]
     Active Substance: DOXAZOSIN\DOXAZOSIN MESYLATE
  10. RANITIDINE. [Concomitant]
     Active Substance: RANITIDINE
  11. NEXIUM [Suspect]
     Active Substance: ESOMEPRAZOLE MAGNESIUM
     Route: 048
     Dates: start: 20080101, end: 20121231
  12. PREVACID [Suspect]
     Active Substance: LANSOPRAZOLE
     Route: 065
  13. ONDANSETRON [Concomitant]
     Active Substance: ONDANSETRON
  14. FERREX [Concomitant]
     Active Substance: FERRIC POLYSACCHARIDE COMPLEX
  15. LIQUACEL [Concomitant]
  16. PRILOSEC [Suspect]
     Active Substance: OMEPRAZOLE MAGNESIUM
     Route: 048
  17. PREVACID 24 HR [Suspect]
     Active Substance: LANSOPRAZOLE
     Route: 065
  18. ZEMPLAR [Concomitant]
     Active Substance: PARICALCITOL

REACTIONS (5)
  - Chronic kidney disease [Unknown]
  - End stage renal disease [Unknown]
  - Nephrogenic anaemia [Unknown]
  - Hyperparathyroidism secondary [Unknown]
  - Renal injury [Unknown]

NARRATIVE: CASE EVENT DATE: 20160613
